FAERS Safety Report 6043042-5 (Version None)
Quarter: 2009Q1

REPORT INFORMATION
  Report Type: 
  Country: None (occurrence: None)
  Receive Date: 20090119
  Receipt Date: 20090108
  Transmission Date: 20090719
  Serious: Yes (Hospitalization)
  Sender: FDA-Public Use
  Company Number: JP-NOVOPROD-282959

PATIENT
  Age: 71 Year
  Sex: Male

DRUGS (1)
  1. NOVORAPID 30 MIX CHU [Suspect]
     Indication: TYPE 2 DIABETES MELLITUS
     Dosage: UNKNOWN
     Dates: start: 20070502

REACTIONS (3)
  - CELLULITIS [None]
  - INJECTION SITE HYPERSENSITIVITY [None]
  - URTICARIA [None]
